FAERS Safety Report 9608470 (Version 2)
Quarter: 2013Q4

REPORT INFORMATION
  Report Type: Spontaneous
  Country: US (occurrence: US)
  Receive Date: 20131009
  Receipt Date: 20131028
  Transmission Date: 20140711
  Serious: Yes (Other)
  Sender: FDA-Public Use
  Company Number: US-SA-2013SA097191

PATIENT
  Age: 62 Year
  Sex: Female

DRUGS (6)
  1. AUBAGIO [Suspect]
     Indication: MULTIPLE SCLEROSIS
     Route: 048
     Dates: start: 201306
  2. ACYCLOVIR [Concomitant]
     Route: 065
  3. CYMBALTA [Concomitant]
     Route: 065
  4. LISINOPRIL W/HYDROCHLOROTHIAZIDE [Concomitant]
     Dosage: DOSE: 10-12.5
     Route: 065
  5. MULTIVITAMINS [Concomitant]
  6. VITAMIN D [Concomitant]
     Route: 065

REACTIONS (2)
  - Multiple sclerosis [Recovering/Resolving]
  - Blood pressure increased [Unknown]
